FAERS Safety Report 8785706 (Version 1)
Quarter: 2012Q4

REPORT INFORMATION
  Report Type: 
  Country: US (occurrence: US)
  Receive Date: 20120914
  Receipt Date: 20120914
  Transmission Date: 20130627
  Serious: Yes (Other)
  Sender: FDA-Public Use
  Company Number: US-JNJFOC-20120902244

PATIENT
  Age: 65 None
  Sex: Female
  Weight: 49.9 kg

DRUGS (4)
  1. DURAGESIC [Suspect]
     Indication: FIBROMYALGIA
     Dosage: 100 ug/hr patch and 25 ug/hr patch
     Route: 062
     Dates: start: 2000
  2. DURAGESIC [Suspect]
     Indication: BACK PAIN
     Dosage: 100 ug/hr patch and 25 ug/hr patch
     Route: 062
     Dates: start: 2000
  3. DURAGESIC [Suspect]
     Indication: FIBROMYALGIA
     Dosage: 100 ug/hr and 25 ug/hr
     Route: 062
  4. DURAGESIC [Suspect]
     Indication: BACK PAIN
     Dosage: 100 ug/hr and 25 ug/hr
     Route: 062

REACTIONS (8)
  - Gastric haemorrhage [Recovered/Resolved]
  - Gastric ulcer [Unknown]
  - Malaise [Recovered/Resolved]
  - Pain [Unknown]
  - Oral infection [Recovering/Resolving]
  - Drug administered at inappropriate site [Not Recovered/Not Resolved]
  - Product quality issue [Unknown]
  - Dermatitis contact [Not Recovered/Not Resolved]
